FAERS Safety Report 5993052-9 (Version None)
Quarter: 2008Q4

REPORT INFORMATION
  Report Type: 
  Country: None (occurrence: None)
  Receive Date: 20081212
  Receipt Date: 20081211
  Transmission Date: 20090506
  Serious: Yes (Death, Congenital Anomaly)
  Sender: FDA-Public Use
  Company Number: DE-BRISTOL-MYERS SQUIBB COMPANY-13674171

PATIENT
  Age: 1 Day

DRUGS (6)
  1. SUSTIVA [Suspect]
     Route: 064
     Dates: start: 20050101, end: 20060925
  2. COMBIVIR [Suspect]
     Route: 064
     Dates: start: 20040101
  3. VALCYTE [Suspect]
     Route: 064
     Dates: start: 20040101, end: 20060925
  4. COTRIM [Suspect]
     Route: 064
     Dates: end: 20060925
  5. NORVIR [Suspect]
     Route: 064
     Dates: start: 20060925, end: 20070201
  6. INVIRASE [Suspect]
     Route: 064
     Dates: start: 20060925, end: 20070201

REACTIONS (4)
  - DEATH [None]
  - MULTIPLE CONGENITAL ABNORMALITIES [None]
  - NEURAL TUBE DEFECT [None]
  - PREGNANCY [None]
